FAERS Safety Report 14220407 (Version 2)
Quarter: 2017Q4

REPORT INFORMATION
  Report Type: Spontaneous
  Country: CA (occurrence: CA)
  Receive Date: 20171124
  Receipt Date: 20171222
  Transmission Date: 20180321
  Serious: No
  Sender: FDA-Public Use
  Company Number: CA-PFIZER INC-2017494705

PATIENT
  Age: 47 Year
  Sex: Female

DRUGS (8)
  1. ATIVAN [Concomitant]
     Active Substance: LORAZEPAM
     Dosage: 2 MG, 1X/DAY
  2. SYNTHROID [Concomitant]
     Active Substance: LEVOTHYROXINE SODIUM
     Dosage: 88 UG, 1X/DAY
     Route: 048
  3. SERTRALINE [Concomitant]
     Active Substance: SERTRALINE HYDROCHLORIDE
     Dosage: 100 MG, 1X/DAY IN THE EVENING
     Route: 048
  4. GENOTROPIN GOQUICK [Suspect]
     Active Substance: SOMATROPIN
     Dosage: 0.15 MG, 1X/DAY
     Route: 058
     Dates: start: 20171116
  5. CORTEF [Concomitant]
     Active Substance: HYDROCORTISONE
     Dosage: 1 MG, ONCE DAILY IN THE MORNING
     Route: 048
     Dates: end: 2017
  6. CORTEF [Concomitant]
     Active Substance: HYDROCORTISONE
     Dosage: 10 MG, 2X/DAY (DOSE TO BE DOUBLED DURING 24-72 HOURS IF TEMPERATURE OR SEVERE ILLNESS)
     Route: 048
     Dates: start: 2017
  7. SYNTHROID [Concomitant]
     Active Substance: LEVOTHYROXINE SODIUM
     Dosage: 75 UG, 1X/DAY
     Route: 048
  8. GENOTROPIN GOQUICK [Suspect]
     Active Substance: SOMATROPIN
     Indication: GROWTH HORMONE DEFICIENCY
     Dosage: UNK, SINGLE (TOOK ONE DOSE ONLY)
     Route: 058
     Dates: start: 2017, end: 2017

REACTIONS (4)
  - Blood pressure decreased [Unknown]
  - Product use complaint [Unknown]
  - Drug dispensing error [Unknown]
  - Incorrect dose administered [Unknown]

NARRATIVE: CASE EVENT DATE: 2017
